FAERS Safety Report 24208242 (Version 1)
Quarter: 2024Q3

REPORT INFORMATION
  Report Type: Spontaneous
  Country: CN (occurrence: CN)
  Receive Date: 20240814
  Receipt Date: 20240814
  Transmission Date: 20241016
  Serious: Yes (Other)
  Sender: DR REDDYS
  Company Number: CN-RDY-LIT/CHN/24/0011793

PATIENT

DRUGS (4)
  1. LENALIDOMIDE [Suspect]
     Active Substance: LENALIDOMIDE
     Indication: Plasma cell myeloma
  2. IXAZOMIB [Suspect]
     Active Substance: IXAZOMIB
     Indication: Plasma cell myeloma
  3. DEXAMETHASONE [Suspect]
     Active Substance: DEXAMETHASONE
     Indication: Plasma cell myeloma
  4. ADRIAMYCIN [Suspect]
     Active Substance: DOXORUBICIN HYDROCHLORIDE
     Indication: Plasma cell myeloma

REACTIONS (7)
  - Malignant neoplasm progression [Unknown]
  - Drug ineffective [Unknown]
  - Treatment noncompliance [Unknown]
  - Blood disorder [Unknown]
  - Adverse event [Unknown]
  - Infection [Unknown]
  - Gastrointestinal disorder [Unknown]
